FAERS Safety Report 5396440-7 (Version None)
Quarter: 2007Q3

REPORT INFORMATION
  Report Type: 
  Country: None (occurrence: None)
  Receive Date: 20070725
  Receipt Date: 20070618
  Transmission Date: 20080115
  Serious: Yes (Hospitalization)
  Sender: FDA-Public Use
  Company Number: PL-AMGEN-UK235311

PATIENT
  Weight: 1.73 kg

DRUGS (1)
  1. ARANESP [Suspect]
     Route: 064
     Dates: start: 20041216

REACTIONS (3)
  - CONGENITAL PNEUMONIA [None]
  - FOETAL GROWTH RETARDATION [None]
  - PREMATURE BABY [None]
